FAERS Safety Report 8082713-6 (Version None)
Quarter: 2012Q1

REPORT INFORMATION
  Report Type: 
  Country: None (occurrence: None)
  Receive Date: 20120127
  Receipt Date: 20110228
  Transmission Date: 20120608
  Serious: Yes (Other)
  Sender: FDA-Public Use
  Company Number: US-ABBOTT-11P-163-0708308-00

PATIENT
  Sex: Male
  Weight: 78.088 kg

DRUGS (3)
  1. HUMIRA [Suspect]
     Indication: CROHN'S DISEASE
     Dates: start: 20050101
  2. HUMIRA [Suspect]
     Dates: start: 20101201
  3. HUMIRA [Suspect]
     Dates: start: 20101001, end: 20101201

REACTIONS (6)
  - SMALL INTESTINE OPERATION [None]
  - CROHN'S DISEASE [None]
  - FAECAL CALPROTECTIN [None]
  - LARGE INTESTINE OPERATION [None]
  - COLON OPERATION [None]
  - CORONARY ARTERY BYPASS [None]
